FAERS Safety Report 6421057-2 (Version None)
Quarter: 2009Q4

REPORT INFORMATION
  Report Type: 
  Country: None (occurrence: None)
  Receive Date: 20091030
  Receipt Date: 20091026
  Transmission Date: 20100525
  Serious: Yes (Other)
  Sender: FDA-Public Use
  Company Number: US-ROCHE-665092

PATIENT
  Sex: Female

DRUGS (15)
  1. XELODA [Suspect]
     Route: 048
     Dates: start: 20061226, end: 20070101
  2. HERCEPTIN [Suspect]
     Indication: DRUG USE FOR UNKNOWN INDICATION
     Dosage: 5 CYCLES
     Route: 065
     Dates: start: 20060810, end: 20061102
  3. HERCEPTIN [Suspect]
     Dosage: THERAPY HELD
     Route: 065
     Dates: start: 20080101
  4. HERCEPTIN [Suspect]
     Route: 065
     Dates: start: 20081014, end: 20090603
  5. HERCEPTIN [Suspect]
     Route: 065
     Dates: start: 20090717
  6. AVASTIN [Suspect]
     Indication: DRUG USE FOR UNKNOWN INDICATION
     Route: 065
     Dates: start: 20081014, end: 20090603
  7. AVASTIN [Suspect]
     Route: 065
     Dates: start: 20090603
  8. GEMZAR [Suspect]
     Indication: DRUG USE FOR UNKNOWN INDICATION
     Dosage: THERAPY HELD
     Route: 065
     Dates: start: 20080101
  9. LAPATINIB [Suspect]
     Indication: DRUG USE FOR UNKNOWN INDICATION
     Route: 065
     Dates: start: 20061226, end: 20071001
  10. LAPATINIB [Suspect]
     Dosage: THERAPY HELD
     Route: 065
     Dates: start: 20080201
  11. LAPATINIB [Suspect]
     Route: 065
     Dates: start: 20081014, end: 20090603
  12. LAPATINIB [Suspect]
     Route: 065
     Dates: start: 20090717
  13. KYTRIL [Suspect]
     Indication: NAUSEA
     Route: 042
     Dates: start: 20080101
  14. BENADRYL [Concomitant]
  15. TYLENOL [Concomitant]

REACTIONS (5)
  - CONVULSION [None]
  - MALIGNANT NEOPLASM PROGRESSION [None]
  - ONYCHOCLASIS [None]
  - PARTIAL SEIZURES [None]
  - SKIN FISSURES [None]
